FAERS Safety Report 16556358 (Version 1)
Quarter: 2019Q3

REPORT INFORMATION
  Report Type: Other
  Country: GB (occurrence: GB)
  Receive Date: 20190710
  Receipt Date: 20190710
  Transmission Date: 20191004
  Serious: Yes (Life-Threatening)
  Sender: FDA-Public Use
  Company Number: GB-CELLTRION INC.-2019GB022693

PATIENT

DRUGS (1)
  1. RITUXIMAB (UNKNOWN) [Suspect]
     Active Substance: RITUXIMAB
     Indication: CHEMOTHERAPY
     Dosage: UNK (ALREADY HAD - NO ANTIDOTE SO PATIENT WAS SYMPTOMATICALLY MANAGED.)
     Route: 041
     Dates: start: 20190606, end: 20190606

REACTIONS (4)
  - Malaise [Unknown]
  - Chest discomfort [Unknown]
  - Rash [Unknown]
  - Syncope [Unknown]

NARRATIVE: CASE EVENT DATE: 20190606
